FAERS Safety Report 17546772 (Version 1)
Quarter: 2020Q1

REPORT INFORMATION
  Report Type: Spontaneous
  Country: US (occurrence: US)
  Receive Date: 20200309
  Receipt Date: 20200309
  Transmission Date: 20200409
  Serious: No
  Sender: FDA-Public Use
  Company Number: None

PATIENT
  Age: 53 Year
  Sex: Female

DRUGS (1)
  1. CAPECITABINE 500MG NOVADOZ PHARMACEUTICALS [Suspect]
     Active Substance: CAPECITABINE
     Indication: BREAST CANCER
     Route: 048
     Dates: start: 201910

REACTIONS (5)
  - Palmar-plantar erythrodysaesthesia syndrome [None]
  - Blister [None]
  - Dizziness [None]
  - Neuropathy peripheral [None]
  - Nausea [None]

NARRATIVE: CASE EVENT DATE: 202001
